FAERS Safety Report 7727782-5 (Version None)
Quarter: 2011Q3

REPORT INFORMATION
  Report Type: 
  Country: None (occurrence: None)
  Receive Date: 20110904
  Receipt Date: 20110825
  Transmission Date: 20111222
  Serious: Yes (Hospitalization)
  Sender: FDA-Public Use
  Company Number: GB-AMGEN-GBRCT2011037355

PATIENT
  Age: 66 Year
  Sex: Male

DRUGS (15)
  1. MORPHINE SULFATE [Concomitant]
  2. HALOPERIDOL [Concomitant]
     Dosage: 1.5 MG, UNK
  3. ADCAL D3 [Concomitant]
     Dosage: UNK UNK, BID
  4. AMITRIPTYLINE HCL [Concomitant]
     Dosage: 10 MG, UNK
  5. EPIRUBICIN [Concomitant]
     Indication: GASTROOESOPHAGEAL CANCER
     Dosage: UNK
     Dates: start: 20110315, end: 20110622
  6. CAPECITABINE [Concomitant]
     Indication: GASTROOESOPHAGEAL CANCER
     Dosage: UNK
     Dates: start: 20110315, end: 20110622
  7. PANITUMUMAB [Suspect]
     Indication: GASTROOESOPHAGEAL CANCER
     Dosage: UNK
     Dates: start: 20110315, end: 20110629
  8. ASPIRIN [Concomitant]
     Dosage: 75 MG, UNK
  9. DOXYCYCLINE [Concomitant]
     Indication: PROPHYLAXIS
     Dosage: 1000 MG, UNK
  10. INFUMORPH [Concomitant]
     Dosage: 10 MG, BID
  11. SENNA [Concomitant]
     Dosage: 1.5 MG, UNK
  12. FERROUS SULFATE TAB [Concomitant]
     Dosage: UNK UNK, BID
  13. FERROUS FUMARATE [Concomitant]
     Dosage: UNK UNK, BID
  14. OXALIPLATIN [Concomitant]
     Indication: GASTROOESOPHAGEAL CANCER
     Dosage: UNK
     Dates: start: 20110315, end: 20110629
  15. DIGOXIN [Concomitant]
     Dosage: 62.5 MG, UNK

REACTIONS (4)
  - ANAEMIA [None]
  - DIZZINESS [None]
  - LOWER RESPIRATORY TRACT INFECTION [None]
  - HYPOMAGNESAEMIA [None]
